FAERS Safety Report 5321868-0 (Version None)
Quarter: 2007Q2

REPORT INFORMATION
  Report Type: 
  Country: None (occurrence: None)
  Receive Date: 20070510
  Receipt Date: 20070507
  Transmission Date: 20071010
  Serious: Yes (Death)
  Sender: FDA-Public Use
  Company Number: IN-ROXANE LABORATORIES, INC-2007-BP-06202RO

PATIENT
  Age: 59 Year
  Sex: Female

DRUGS (1)
  1. METHOTREXATE [Suspect]
     Indication: RHEUMATOID ARTHRITIS
     Dosage: 7.5 MG WEEKLY X 5 YEARS
     Route: 048

REACTIONS (10)
  - APALLIC SYNDROME [None]
  - DISORIENTATION [None]
  - HEMIPARESIS [None]
  - LEUKOENCEPHALOPATHY [None]
  - LUNG INFECTION PSEUDOMONAL [None]
  - PROGRESSIVE MULTIFOCAL LEUKOENCEPHALOPATHY [None]
  - REVERSIBLE POSTERIOR LEUKOENCEPHALOPATHY SYNDROME [None]
  - SEPSIS [None]
  - VISION BLURRED [None]
  - VOMITING [None]
